FAERS Safety Report 5522482-4 (Version None)
Quarter: 2007Q4

REPORT INFORMATION
  Report Type: 
  Country: None (occurrence: None)
  Receive Date: 20071120
  Receipt Date: 20071112
  Transmission Date: 20080405
  Serious: Yes (Hospitalization)
  Sender: FDA-Public Use
  Company Number: US-ELI_LILLY_AND_COMPANY-US200710007693

PATIENT
  Age: 68 Year
  Sex: Female

DRUGS (23)
  1. HUMALOG [Suspect]
     Dosage: 100 U, UNK
  2. NOVOLIN 50/50 [Concomitant]
     Dosage: 85 U, EACH MORNING
  3. NOVOLIN 50/50 [Concomitant]
     Dosage: 85 U, EACH EVENING
  4. MAGNESIUM SULFATE [Concomitant]
     Dosage: 400 MG, UNK
  5. ALTACE [Concomitant]
     Dosage: 2.5 MG, UNK
  6. POTASSIUM CHLORIDE [Concomitant]
     Dosage: 20 MEQ, UNK
  7. POTASSIUM CHLORIDE [Concomitant]
     Dosage: 10 MG, UNK
  8. POTASSIUM CHLORIDE [Concomitant]
     Dosage: 20 MEQ, UNK
  9. TOPROL-XL [Concomitant]
     Dosage: 50 MG, UNK
  10. LIPITOR [Concomitant]
     Dosage: 10 MG, UNK
  11. AMBIEN [Concomitant]
     Dosage: 5 MG, UNK
  12. AGGRENOX [Concomitant]
  13. LASIX [Concomitant]
     Indication: BLOOD PRESSURE
     Dosage: 40 MG, UNK
  14. DARVOCET [Concomitant]
     Dosage: 100 UNK, UNK
  15. METFORMIN HYDROCHLORIDE [Concomitant]
     Dosage: 1000 MG, UNK
  16. MELZINE [Concomitant]
     Dosage: 25 MG, UNK
  17. ELAVIL [Concomitant]
     Dosage: 50 MG, UNK
  18. TRAMADOL HCL [Concomitant]
     Dosage: 50 MG, UNK
  19. CARBATROL [Concomitant]
     Dosage: 200 MG, UNK
  20. MELLARIL [Concomitant]
     Dosage: 50 MG, UNK
  21. LEXAPRO [Concomitant]
     Dosage: 10 MG, UNK
  22. ASCORBIC ACID [Concomitant]
     Dosage: 500 MG, UNK
  23. VALIUM [Concomitant]
     Dosage: 5 MG, UNK

REACTIONS (2)
  - CEREBROVASCULAR ACCIDENT [None]
  - MYOCARDIAL INFARCTION [None]
